FAERS Safety Report 25985735 (Version 1)
Quarter: 2025Q4

REPORT INFORMATION
  Report Type: Spontaneous
  Country: EU (occurrence: EU)
  Receive Date: 20251031
  Receipt Date: 20251031
  Transmission Date: 20260118
  Serious: Yes (Life-Threatening, Other)
  Sender: BAYER HEALTHCARE PHARMACEUTICALS INC.
  Company Number: None

PATIENT
  Age: 52 Year
  Sex: Female

DRUGS (2)
  1. ULTRAVIST [Suspect]
     Active Substance: IOPROMIDE
     Dosage: UNK, ONCE
     Route: 042
     Dates: start: 20250709
  2. GADOBUTROL [Suspect]
     Active Substance: GADOBUTROL
     Dosage: UNK UNK, ONCE
     Route: 042
     Dates: start: 20250709

REACTIONS (2)
  - Brain hypoxia [Unknown]
  - Hypoxic-ischaemic encephalopathy [Unknown]

NARRATIVE: CASE EVENT DATE: 20250709
